FAERS Safety Report 16583092 (Version 2)
Quarter: 2019Q4

REPORT INFORMATION
  Report Type: Spontaneous
  Country: BR (occurrence: BR)
  Receive Date: 20190717
  Receipt Date: 20191009
  Transmission Date: 20200122
  Serious: Yes (Death, Other)
  Sender: FDA-Public Use
  Company Number: BR-AMGEN-BRASP2014045964

PATIENT
  Age: 79 Year
  Sex: Male
  Weight: 75 kg

DRUGS (1)
  1. ENBREL [Suspect]
     Active Substance: ETANERCEPT
     Indication: PSORIATIC ARTHROPATHY
     Dosage: 50 MILLIGRAM, QWK
     Route: 058
     Dates: start: 200910, end: 201606

REACTIONS (7)
  - Therapeutic product effect incomplete [Unknown]
  - Pruritus [Unknown]
  - Weight decreased [Unknown]
  - Craniocerebral injury [Fatal]
  - Scab [Unknown]
  - Fall [Fatal]
  - Psoriasis [Unknown]

NARRATIVE: CASE EVENT DATE: 2014
